FAERS Safety Report 19454868 (Version 10)
Quarter: 2023Q1

REPORT INFORMATION
  Report Type: Report from Study
  Country: ES (occurrence: ES)
  Receive Date: 20210623
  Receipt Date: 20230307
  Transmission Date: 20230418
  Serious: Yes (Hospitalization, Other)
  Sender: FDA-Public Use
  Company Number: ES-TAKEDA-2021TUS037018

PATIENT
  Age: 62 Year
  Sex: Female

DRUGS (18)
  1. TEDUGLUTIDE [Suspect]
     Active Substance: TEDUGLUTIDE
     Indication: Short-bowel syndrome
     Dosage: 2.4 MILLIGRAM, QD
     Route: 058
     Dates: start: 20190522, end: 20191121
  2. TEDUGLUTIDE [Suspect]
     Active Substance: TEDUGLUTIDE
     Indication: Short-bowel syndrome
     Dosage: 2.4 MILLIGRAM, QD
     Route: 058
     Dates: start: 20190522, end: 20191121
  3. TEDUGLUTIDE [Suspect]
     Active Substance: TEDUGLUTIDE
     Indication: Short-bowel syndrome
     Dosage: 2.4 MILLIGRAM, QD
     Route: 058
     Dates: start: 20190522, end: 20191121
  4. TEDUGLUTIDE [Suspect]
     Active Substance: TEDUGLUTIDE
     Indication: Short-bowel syndrome
     Dosage: 2.4 MILLIGRAM, QD
     Route: 058
     Dates: start: 20190522, end: 20191121
  5. IRON SUCROSE [Concomitant]
     Active Substance: IRON SUCROSE
     Indication: Iron deficiency
     Dosage: 200 MILLIGRAM, 3/WEEK
     Route: 042
     Dates: start: 20200219, end: 20200302
  6. SCOPOLAMINE [Concomitant]
     Active Substance: SCOPOLAMINE
     Indication: Muscle spasms
     Dosage: 20 MILLIGRAM, QD
     Route: 042
     Dates: start: 20200225, end: 20200229
  7. METOCLOPRAMIDE [Concomitant]
     Active Substance: METOCLOPRAMIDE
     Indication: Nausea
     Dosage: 10 MILLIGRAM, ONE DOSE
     Route: 042
     Dates: start: 20200209, end: 20200209
  8. DAPTOMYCIN [Concomitant]
     Active Substance: DAPTOMYCIN
     Indication: Urinary tract infection
     Dosage: 300 MILLIGRAM, QD
     Route: 042
     Dates: start: 20200209, end: 20200211
  9. DAPTOMYCIN [Concomitant]
     Active Substance: DAPTOMYCIN
     Dosage: 500 MILLIGRAM, QD
     Route: 042
     Dates: start: 20210430, end: 20210506
  10. ERTAPENEM [Concomitant]
     Active Substance: ERTAPENEM
     Indication: Infection
     Dosage: 1 GRAM, QD
     Route: 042
     Dates: start: 20210410, end: 20210412
  11. ERTAPENEM [Concomitant]
     Active Substance: ERTAPENEM
     Dosage: 1 GRAM, QD
     Route: 042
     Dates: start: 20210709, end: 20210721
  12. ANIDULAFUNGIN [Concomitant]
     Active Substance: ANIDULAFUNGIN
     Indication: Infection
     Dosage: 100 GRAM, QD
     Route: 042
     Dates: start: 20210501, end: 20210502
  13. MEROPENEM [Concomitant]
     Active Substance: MEROPENEM
     Indication: Infection
     Dosage: 1 GRAM, TID
     Route: 042
     Dates: start: 20210509, end: 20210510
  14. DAPTOMYCIN [Concomitant]
     Active Substance: DAPTOMYCIN
     Indication: Infection
     Dosage: 500 MILLIGRAM, QD
     Route: 042
     Dates: start: 20210430, end: 20210506
  15. AMIKACIN [Concomitant]
     Active Substance: AMIKACIN
     Indication: Infection
     Dosage: 250 MILLIGRAM, QD
     Route: 042
     Dates: start: 20210709, end: 20210721
  16. CEFTAZIDIME [Concomitant]
     Active Substance: CEFTAZIDIME
     Indication: Sepsis
     Dosage: 2 GRAM, TID
     Route: 042
     Dates: start: 20220604, end: 20220703
  17. APIXABAN [Concomitant]
     Active Substance: APIXABAN
     Indication: Thrombosis
     Dosage: 5 MILLIGRAM, BID
     Route: 048
     Dates: start: 20220309
  18. ACENOCOUMAROL [Concomitant]
     Active Substance: ACENOCOUMAROL
     Indication: Thrombosis
     Dosage: 20 MILLIGRAM, 1/WEEK
     Route: 048
     Dates: start: 20220117, end: 20220309

REACTIONS (9)
  - Device related infection [Recovered/Resolved]
  - Escherichia sepsis [Not Recovered/Not Resolved]
  - Bacteraemia [Recovered/Resolved]
  - Device related sepsis [Recovered/Resolved]
  - Gastrointestinal haemorrhage [Recovered/Resolved]
  - Parenteral nutrition associated liver disease [Not Recovered/Not Resolved]
  - Urinary tract infection [Recovered/Resolved]
  - Skin irritation [Not Recovered/Not Resolved]
  - COVID-19 [Recovered/Resolved]

NARRATIVE: CASE EVENT DATE: 20201107
